FAERS Safety Report 15330835 (Version 1)
Quarter: 2018Q3

REPORT INFORMATION
  Report Type: Spontaneous
  Country: NL (occurrence: NL)
  Receive Date: 20180829
  Receipt Date: 20180829
  Transmission Date: 20181010
  Serious: Yes (Death, Other)
  Sender: FDA-Public Use
  Company Number: NL-JNJFOC-20180839259

PATIENT
  Age: 82 Year
  Sex: Male

DRUGS (1)
  1. XARELTO [Suspect]
     Active Substance: RIVAROXABAN
     Indication: ATRIAL FIBRILLATION
     Route: 048

REACTIONS (8)
  - Haematoma [Unknown]
  - Dysphagia [Unknown]
  - Subcutaneous haematoma [Unknown]
  - Haemoptysis [Unknown]
  - Lung infection [Fatal]
  - Eye infection [Unknown]
  - Blindness [Unknown]
  - Exophthalmos [Unknown]
